FAERS Safety Report 8831721 (Version 1)
Quarter: 2012Q4

REPORT INFORMATION
  Report Type: 
  Country: US (occurrence: US)
  Receive Date: 20121009
  Receipt Date: 20121009
  Transmission Date: 20130627
  Serious: No
  Sender: FDA-Public Use
  Company Number: US-ASTRAZENECA-2012SE75648

PATIENT
  Sex: Male

DRUGS (3)
  1. METOPROLOL SUCCINATE [Suspect]
     Indication: ANGINA PECTORIS
     Route: 048
  2. METOPROLOL SUCCINATE [Suspect]
     Indication: ANGINA PECTORIS
     Route: 048
  3. METOPROLOL SUCCINATE [Suspect]
     Indication: ANGINA PECTORIS
     Route: 048

REACTIONS (2)
  - Insomnia [Unknown]
  - Off label use [Unknown]
